FAERS Safety Report 7217384-1 (Version None)
Quarter: 2011Q1

REPORT INFORMATION
  Report Type: 
  Country: None (occurrence: None)
  Receive Date: 20110110
  Receipt Date: 20101228
  Transmission Date: 20110831
  Serious: Yes (Hospitalization)
  Sender: FDA-Public Use
  Company Number: PHHY2010US88931

PATIENT
  Sex: Female

DRUGS (4)
  1. ZETIA [Concomitant]
  2. DIOVAN [Suspect]
     Dosage: 160 MG (2 PER DAY)
     Route: 048
  3. NORVASC [Concomitant]
  4. TEMAZEPAM [Concomitant]

REACTIONS (1)
  - GASTROINTESTINAL DISORDER [None]
